FAERS Safety Report 8623612-8 (Version None)
Quarter: 2012Q3

REPORT INFORMATION
  Report Type: 
  Country: None (occurrence: None)
  Receive Date: 20120827
  Receipt Date: 20120816
  Transmission Date: 20120928
  Serious: Yes (Death, Hospitalization, Other)
  Sender: FDA-Public Use
  Company Number: FR-SANOFI-AVENTIS-2012SA050229

PATIENT
  Age: 13 Year
  Sex: Male

DRUGS (4)
  1. ACETYLSALICYLIC ACID SRT [Concomitant]
     Indication: POISONING DELIBERATE
     Route: 048
  2. CHLOROQUINE PHOSPHATE [Suspect]
     Indication: POISONING DELIBERATE
     Route: 048
  3. ACETAMINOPHEN [Concomitant]
     Indication: POISONING DELIBERATE
     Route: 048
  4. ATENOLOL [Concomitant]
     Indication: POISONING DELIBERATE
     Route: 048

REACTIONS (21)
  - PCO2 INCREASED [None]
  - AGITATION [None]
  - ACUTE PULMONARY OEDEMA [None]
  - TOXICITY TO VARIOUS AGENTS [None]
  - CARDIO-RESPIRATORY ARREST [None]
  - TACHYCARDIA [None]
  - HYPOKALAEMIA [None]
  - CARDIAC ARREST [None]
  - HYPERLACTACIDAEMIA [None]
  - CONFUSIONAL STATE [None]
  - HAEMOPTYSIS [None]
  - OXYGEN SATURATION DECREASED [None]
  - DYSPNOEA [None]
  - CHEST PAIN [None]
  - ELECTROCARDIOGRAM QRS COMPLEX PROLONGED [None]
  - GRAND MAL CONVULSION [None]
  - BLOOD PRESSURE DECREASED [None]
  - HYPOXIA [None]
  - PULMONARY HAEMORRHAGE [None]
  - ACIDOSIS [None]
  - CYTOLYTIC HEPATITIS [None]
